FAERS Safety Report 7676737-8 (Version None)
Quarter: 2011Q3

REPORT INFORMATION
  Report Type: 
  Country: None (occurrence: None)
  Receive Date: 20110811
  Receipt Date: 20110801
  Transmission Date: 20111222
  Serious: Yes (Hospitalization)
  Sender: FDA-Public Use
  Company Number: FR-BRISTOL-MYERS SQUIBB COMPANY-15943525

PATIENT
  Age: 61 Year
  Sex: Male

DRUGS (6)
  1. COUMADIN [Suspect]
     Route: 048
     Dates: start: 20110501, end: 20110609
  2. ALFUZOSIN HCL [Concomitant]
  3. PERINDOPRIL ERBUMINE [Concomitant]
  4. ASPIRIN [Suspect]
  5. ATORVASTATIN CALCIUM [Concomitant]
  6. JANUVIA [Concomitant]

REACTIONS (3)
  - MELAENA [None]
  - INTERNATIONAL NORMALISED RATIO INCREASED [None]
  - OESOPHAGEAL ULCER [None]
